FAERS Safety Report 6932375-3 (Version None)
Quarter: 2010Q3

REPORT INFORMATION
  Report Type: 
  Country: None (occurrence: None)
  Receive Date: 20100813
  Receipt Date: 20100624
  Transmission Date: 20110219
  Serious: Yes (Other)
  Sender: FDA-Public Use
  Company Number: 1000014051

PATIENT
  Age: 55 Year
  Sex: Female

DRUGS (10)
  1. SAVELLA [Suspect]
     Indication: FIBROMYALGIA
     Dosage: 12.5 MG (12.5 MG, 1 IN 1 D), ORAL ; 25 MG (12.5 MG, 2 IN 1 D), ORAL ; 50 MG (25 MG, 2 IN 1 D), ORAL
     Route: 048
     Dates: start: 20100101, end: 20100101
  2. SAVELLA [Suspect]
     Indication: FIBROMYALGIA
     Dosage: 12.5 MG (12.5 MG, 1 IN 1 D), ORAL ; 25 MG (12.5 MG, 2 IN 1 D), ORAL ; 50 MG (25 MG, 2 IN 1 D), ORAL
     Route: 048
     Dates: start: 20100101, end: 20100101
  3. SAVELLA [Suspect]
     Indication: FIBROMYALGIA
     Dosage: 12.5 MG (12.5 MG, 1 IN 1 D), ORAL ; 25 MG (12.5 MG, 2 IN 1 D), ORAL ; 50 MG (25 MG, 2 IN 1 D), ORAL
     Route: 048
     Dates: start: 20100101, end: 20100101
  4. SAVELLA [Suspect]
     Indication: FIBROMYALGIA
     Dosage: 100 MG (50 MG, 2 IN 1 D), ORAL
     Route: 048
     Dates: start: 20100101, end: 20100101
  5. SAVELLA [Suspect]
     Indication: FIBROMYALGIA
     Dosage: 50 MG (25 MG, 2 IN 1 D), ORAL ; 25 MG (25 MG, 1 IN 1 D), ORAL
     Route: 048
     Dates: start: 20100101, end: 20100602
  6. SAVELLA [Suspect]
     Indication: FIBROMYALGIA
     Dosage: 50 MG (25 MG, 2 IN 1 D), ORAL ; 25 MG (25 MG, 1 IN 1 D), ORAL
     Route: 048
     Dates: start: 20100603
  7. FLUOXETINE [Concomitant]
  8. NIACIN [Concomitant]
  9. VITAMIN D [Concomitant]
  10. MULTI-VITAMINS [Concomitant]

REACTIONS (3)
  - DEPRESSION [None]
  - INCREASED APPETITE [None]
  - SUICIDAL IDEATION [None]
